FAERS Safety Report 6508861-7 (Version None)
Quarter: 2009Q4

REPORT INFORMATION
  Report Type: 
  Country: None (occurrence: None)
  Receive Date: 20091221
  Receipt Date: 20090818
  Transmission Date: 20100525
  Serious: No
  Sender: FDA-Public Use
  Company Number: US-ASTRAZENECA-2009SE08797

PATIENT
  Age: 77 Year
  Sex: Female
  Weight: 55.8 kg

DRUGS (2)
  1. CRESTOR [Suspect]
     Route: 048
     Dates: start: 20090301
  2. ZETIA [Concomitant]

REACTIONS (2)
  - ALOPECIA [None]
  - HEADACHE [None]
